FAERS Safety Report 10357515 (Version 1)
Quarter: 2014Q3

REPORT INFORMATION
  Report Type: Other
  Country: US (occurrence: US)
  Receive Date: 20140801
  Receipt Date: 20140801
  Transmission Date: 20150326
  Serious: Yes (Hospitalization)
  Sender: FDA-Public Use
  Company Number: US-SHIRE-US201404378

PATIENT
  Age: 57 Year
  Sex: Female

DRUGS (2)
  1. DANAZOL. [Suspect]
     Active Substance: DANAZOL
     Indication: PRODUCT USED FOR UNKNOWN INDICATION
     Dosage: UNK, UNKNOWN
     Route: 065
  2. FIRAZYR [Suspect]
     Active Substance: ICATIBANT ACETATE
     Indication: HEREDITARY ANGIOEDEMA
     Dosage: 30 MG, OTHER (AS NEEDED FOR ATTACK UP TO 3)
     Route: 058
     Dates: start: 20140226

REACTIONS (5)
  - Laryngeal oedema [Unknown]
  - Drug hypersensitivity [Unknown]
  - Swelling face [Unknown]
  - Local swelling [Unknown]
  - Swollen tongue [Unknown]

NARRATIVE: CASE EVENT DATE: 20140721
